FAERS Safety Report 5646427-1 (Version None)
Quarter: 2008Q1

REPORT INFORMATION
  Report Type: 
  Country: None (occurrence: None)
  Receive Date: 20080228
  Receipt Date: 20080228
  Transmission Date: 20080703
  Serious: No
  Sender: FDA-Public Use
  Company Number: None

PATIENT

DRUGS (1)
  1. TAMOXIFEN CITRATE [Suspect]
     Dosage: DAILY

REACTIONS (1)
  - PHARMACEUTICAL PRODUCT COMPLAINT [None]
